FAERS Safety Report 17051383 (Version 2)
Quarter: 2019Q4

REPORT INFORMATION
  Report Type: Spontaneous
  Country: BR (occurrence: BR)
  Receive Date: 20191120
  Receipt Date: 20191126
  Transmission Date: 20200122
  Serious: Yes (Other)
  Sender: FDA-Public Use
  Company Number: BR-CELLTRION INC.-2019BR026426

PATIENT

DRUGS (3)
  1. REMICADE [Suspect]
     Active Substance: INFLIXIMAB
     Indication: COLITIS
     Dosage: UNK
     Route: 065
  2. REMSIMA [Suspect]
     Active Substance: INFLIXIMAB
     Indication: COLITIS
     Dosage: 1ST WEEK, THEN AFTER 2 WEEKS; ANOTHER DOSE AFTER 4 WEEKS; ANOTHER DOSE AFTER 8 WEEKS AND THEN EVERY
     Route: 065
     Dates: start: 2018
  3. ADALIMUMAB [Concomitant]
     Active Substance: ADALIMUMAB
     Indication: COLITIS
     Dosage: UNK

REACTIONS (2)
  - Product use issue [Unknown]
  - Crohn^s disease [Not Recovered/Not Resolved]
